FAERS Safety Report 5130982-4 (Version None)
Quarter: 2006Q4

REPORT INFORMATION
  Report Type: 
  Country: None (occurrence: None)
  Receive Date: 20060829
  Receipt Date: 20060714
  Transmission Date: 20070319
  Serious: Yes (Disabling, Other)
  Sender: FDA-Public Use
  Company Number: PHEH2006US05952

PATIENT
  Age: 67 Year
  Sex: Male

DRUGS (6)
  1. EXJADE [Suspect]
     Indication: HAEMOCHROMATOSIS
     Dosage: 20 MG/KG
     Dates: start: 20060208, end: 20060410
  2. LASIX [Concomitant]
  3. LANTUS [Concomitant]
  4. NIASPAN [Concomitant]
  5. COZAAR [Concomitant]
  6. FOLTX (CYANOCOBALAMIN, FOLIC ACID, PYRIDOXINE) [Concomitant]

REACTIONS (5)
  - BALANCE DISORDER [None]
  - DEAFNESS BILATERAL [None]
  - LOWER RESPIRATORY TRACT INFECTION [None]
  - NASOPHARYNGITIS [None]
  - TINNITUS [None]
